FAERS Safety Report 13297638 (Version 1)
Quarter: 2017Q1

REPORT INFORMATION
  Report Type: Spontaneous
  Country: US (occurrence: US)
  Receive Date: 20170305
  Receipt Date: 20170305
  Transmission Date: 20170428
  Serious: Yes (Hospitalization)
  Sender: FDA-Public Use
  Company Number: None

PATIENT
  Age: 56 Year
  Sex: Male

DRUGS (1)
  1. TESTOSTERONE INJECTIONS [Suspect]
     Active Substance: TESTOSTERONE
     Indication: BLOOD TESTOSTERONE DECREASED
     Dosage: OTHER FREQUENCY:WEEKLY;OTHER ROUTE:INJECTED?
     Dates: start: 20160812, end: 20160916

REACTIONS (8)
  - Depression [None]
  - Cardiac failure [None]
  - Poor quality drug administered [None]
  - Renal failure [None]
  - Pneumonia [None]
  - Product use issue [None]
  - Insomnia [None]
  - Pericardial effusion [None]

NARRATIVE: CASE EVENT DATE: 20160926
